FAERS Safety Report 12771823 (Version 2)
Quarter: 2016Q4

REPORT INFORMATION
  Report Type: Spontaneous
  Country: US (occurrence: US)
  Receive Date: 20160922
  Receipt Date: 20161019
  Transmission Date: 20170207
  Serious: Yes (Other)
  Sender: FDA-Public Use
  Company Number: US-BAYER-2016-183451

PATIENT
  Age: 80 Year
  Sex: Male
  Weight: 77.98 kg

DRUGS (6)
  1. LISINOPRIL AND HYDROCHLOROTHIAZIDE [Concomitant]
     Active Substance: HYDROCHLOROTHIAZIDE\LISINOPRIL
     Dosage: 20 MG - 12.5 MG
     Route: 048
  2. XOFIGO [Suspect]
     Active Substance: RADIUM RA-223 DICHLORIDE
     Indication: PROSTATE CANCER STAGE IV
     Dosage: 116.5 ?CI, ONCE
     Route: 042
     Dates: start: 20160713, end: 20160713
  3. XOFIGO [Suspect]
     Active Substance: RADIUM RA-223 DICHLORIDE
     Indication: PROSTATE CANCER STAGE IV
     Dosage: 111.76 ?CI, ONCE
     Route: 042
     Dates: start: 20160817, end: 20160817
  4. XOFIGO [Suspect]
     Active Substance: RADIUM RA-223 DICHLORIDE
     Indication: PROSTATE CANCER STAGE IV
     Dosage: 117.0 ?CI, ONCE
     Route: 042
     Dates: start: 20160518, end: 20160518
  5. GARLIC. [Concomitant]
     Active Substance: GARLIC
  6. XOFIGO [Suspect]
     Active Substance: RADIUM RA-223 DICHLORIDE
     Indication: METASTASES TO BONE
     Dosage: 113.8 ?CI, ONCE
     Route: 042
     Dates: start: 20160616, end: 20160616

REACTIONS (14)
  - Myalgia [None]
  - Asthenia [None]
  - Headache [None]
  - Diarrhoea [Recovered/Resolved]
  - Fatigue [Recovered/Resolved]
  - Back pain [None]
  - Arthralgia [None]
  - Prostate cancer [None]
  - Fatigue [None]
  - Prostatic specific antigen increased [None]
  - Haemoglobin decreased [None]
  - Blood alkaline phosphatase decreased [None]
  - Abnormal loss of weight [None]
  - Joint swelling [None]

NARRATIVE: CASE EVENT DATE: 2016
